FAERS Safety Report 19768722 (Version 1)
Quarter: 2021Q3

REPORT INFORMATION
  Report Type: Spontaneous
  Country: US (occurrence: US)
  Receive Date: 20210831
  Receipt Date: 20210831
  Transmission Date: 20211014
  Serious: No
  Sender: FDA-Public Use
  Company Number: None

PATIENT
  Age: 91 Year
  Sex: Female
  Weight: 68 kg

DRUGS (19)
  1. ATORVASTATIN 40MG [Concomitant]
     Active Substance: ATORVASTATIN
  2. METFORMIN 500MG [Concomitant]
     Active Substance: METFORMIN HYDROCHLORIDE
  3. FAMOTIDINE 20MG [Concomitant]
     Active Substance: FAMOTIDINE
  4. SENNA [Concomitant]
     Active Substance: SENNA LEAF\SENNOSIDES\SENNOSIDES A AND B
  5. LATANOPROST 0.005% [Concomitant]
     Active Substance: LATANOPROST
  6. VITAMIN D 2000IU [Concomitant]
  7. ELIQUIS [Concomitant]
     Active Substance: APIXABAN
  8. LYRICA [Concomitant]
     Active Substance: PREGABALIN
  9. ONDANSETRON 4MG [Concomitant]
     Active Substance: ONDANSETRON
  10. POTASSIUM CHLORIDE. [Concomitant]
     Active Substance: POTASSIUM CHLORIDE
  11. CRANBERRY. [Concomitant]
     Active Substance: CRANBERRY
  12. CINNAMON 1000MG [Concomitant]
  13. AMLODIPINE 2.5MG [Concomitant]
     Active Substance: AMLODIPINE BESYLATE
  14. ASPIRIN 81MG [Concomitant]
     Active Substance: ASPIRIN
  15. TRIMETHOPRIM 100MG [Concomitant]
  16. PANTOPRAZOLE 20MG [Concomitant]
     Active Substance: PANTOPRAZOLE SODIUM
  17. TYLENOL EXTRA STRENGTH [Concomitant]
     Active Substance: ACETAMINOPHEN
  18. CAPECITABINE. [Suspect]
     Active Substance: CAPECITABINE
     Indication: BREAST CANCER
     Dosage: ?          OTHER FREQUENCY:BID FOR 14/21 DAYS;?
     Route: 048
     Dates: start: 20210822
  19. VITAMIN B12 [Concomitant]
     Active Substance: CYANOCOBALAMIN

REACTIONS (3)
  - Diarrhoea [None]
  - Oral pain [None]
  - Glossodynia [None]

NARRATIVE: CASE EVENT DATE: 20210831
